FAERS Safety Report 6644743-8 (Version None)
Quarter: 2010Q1

REPORT INFORMATION
  Report Type: 
  Country: None (occurrence: None)
  Receive Date: 20100322
  Receipt Date: 20100311
  Transmission Date: 20100710
  Serious: Yes (Hospitalization, Disabling)
  Sender: FDA-Public Use
  Company Number: JP-ELI_LILLY_AND_COMPANY-JP200910007292

PATIENT
  Sex: Male
  Weight: 54 kg

DRUGS (6)
  1. GEMZAR [Suspect]
     Indication: BLADDER CANCER STAGE IV
     Dosage: 700 MG, OTHER
     Route: 042
     Dates: start: 20091015, end: 20091022
  2. RANDA [Concomitant]
     Indication: BLADDER CANCER STAGE IV
     Dosage: 60 MG, OTHER
     Route: 042
     Dates: start: 20091016, end: 20091016
  3. DECADRON /00016002/ [Concomitant]
     Indication: PROPHYLAXIS
     Dosage: 100 MG, DAILY (1/D)
     Route: 042
     Dates: start: 20091015, end: 20091022
  4. RAMELTEON [Concomitant]
     Indication: PROPHYLAXIS
     Dosage: 0.3 MG, 3/D
     Route: 042
     Dates: start: 20091015, end: 20091022
  5. MANNITOL [Concomitant]
     Indication: PROPHYLAXIS
     Dosage: 300 ML, DAILY (1/D)
     Route: 042
     Dates: start: 20091016, end: 20091016
  6. CONIEL [Concomitant]
     Indication: HYPERTENSION
     Dosage: 4 MG, DAILY (1/D)
     Route: 048

REACTIONS (1)
  - CEREBRAL INFARCTION [None]
